FAERS Safety Report 11039590 (Version 6)
Quarter: 2015Q2

REPORT INFORMATION
  Report Type: Report from Study
  Country: FR (occurrence: FR)
  Receive Date: 20150416
  Receipt Date: 20150611
  Transmission Date: 20150821
  Serious: Yes (Hospitalization)
  Sender: FDA-Public Use
  Company Number: FR-BAYER-2015-032948

PATIENT
  Age: 51 Year
  Sex: Male
  Weight: 68 kg

DRUGS (22)
  1. REGORAFENIB [Suspect]
     Active Substance: REGORAFENIB
     Indication: HEPATOCELLULAR CARCINOMA
     Dosage: 80 MG, QD
     Route: 048
     Dates: start: 20150401, end: 20150420
  2. OXYNORM [Concomitant]
     Active Substance: OXYCODONE HYDROCHLORIDE
     Indication: ABDOMINAL PAIN UPPER
     Dosage: 5 MG, TID
     Route: 048
     Dates: start: 20141201, end: 20150202
  3. OXYNORM [Concomitant]
     Active Substance: OXYCODONE HYDROCHLORIDE
     Indication: ABDOMINAL PAIN UPPER
     Dosage: DAILY DOSE 10 MG
     Route: 048
     Dates: start: 20150203
  4. ACTISKENAN [Concomitant]
     Active Substance: MORPHINE SULFATE
     Indication: PAIN
     Dosage: 120 MG, PRN
     Route: 048
     Dates: start: 20150428
  5. ZOPHREN [Concomitant]
     Active Substance: ONDANSETRON
     Indication: NAUSEA
     Dosage: DAILY DOSE 8 MG
     Route: 048
     Dates: start: 20150316
  6. MOPRALPRO 20MG [Concomitant]
     Active Substance: OMEPRAZOLE
     Indication: PAIN PROPHYLAXIS
     Dosage: DAILY DOSE 40 MG
     Route: 048
     Dates: start: 20150304
  7. OXYCONTIN [Concomitant]
     Active Substance: OXYCODONE HYDROCHLORIDE
     Indication: ABDOMINAL PAIN UPPER
     Dosage: DAILY DOSE 15 MG
     Route: 048
     Dates: start: 20150119, end: 20150202
  8. ZOPHREN [Concomitant]
     Active Substance: ONDANSETRON
     Indication: VOMITING
     Dosage: 8 MG DAILY
     Route: 048
     Dates: start: 20150303
  9. LYRICA [Concomitant]
     Active Substance: PREGABALIN
     Indication: MUSCULOSKELETAL CHEST PAIN
     Dosage: DAILY DOSE 150 MG
     Route: 048
     Dates: start: 20150427
  10. REGORAFENIB [Suspect]
     Active Substance: REGORAFENIB
     Indication: HEPATOCELLULAR CARCINOMA
     Dosage: 160 MG, QD
     Route: 048
     Dates: start: 20150126, end: 20150209
  11. REGORAFENIB [Suspect]
     Active Substance: REGORAFENIB
     Indication: HEPATOCELLULAR CARCINOMA
     Dosage: 80 MG, QD
     Route: 048
     Dates: start: 20150428
  12. SKENAN [Concomitant]
     Active Substance: MORPHINE SULFATE
     Indication: PAIN
     Dosage: DAILY DOSE 160 MG
     Route: 048
     Dates: start: 20150428
  13. XANAX [Concomitant]
     Active Substance: ALPRAZOLAM
     Indication: ANXIETY
     Dosage: DAILY DOSE .5 MG
     Route: 048
     Dates: start: 20150428
  14. IMOVANE [Concomitant]
     Active Substance: ZOPICLONE
     Indication: INSOMNIA
     Dosage: DAILY DOSE 7.5 MG
     Route: 048
     Dates: start: 20150428
  15. REGORAFENIB [Suspect]
     Active Substance: REGORAFENIB
     Indication: HEPATOCELLULAR CARCINOMA
     Dosage: 120 MG, QD
     Route: 048
     Dates: start: 20150210, end: 20150215
  16. REGORAFENIB [Suspect]
     Active Substance: REGORAFENIB
     Indication: HEPATOCELLULAR CARCINOMA
     Dosage: 80 MG, QD
     Route: 048
     Dates: start: 20150305, end: 20150322
  17. FORTIMEL [Concomitant]
     Active Substance: DIETARY SUPPLEMENT
     Indication: PROPHYLAXIS
     Dosage: DAILY DOSE 3 PACKS
     Route: 048
     Dates: start: 20141201
  18. OXYCONTIN [Concomitant]
     Active Substance: OXYCODONE HYDROCHLORIDE
     Indication: ABDOMINAL PAIN UPPER
     Dosage: DAILY DOSE 40 MG
     Route: 048
     Dates: start: 20150203
  19. PRIMPERAN [Concomitant]
     Active Substance: METOCLOPRAMIDE HYDROCHLORIDE
     Indication: VOMITING
     Dosage: DAILY DOSE 10 MG
     Route: 048
     Dates: start: 20150126
  20. KARDEGIC [ACETYLSALICYLATE LYSINE] [Concomitant]
     Indication: PERIPHERAL ARTERIAL OCCLUSIVE DISEASE
     Dosage: DAILY DOSE 75 MG
     Route: 048
     Dates: start: 20141201
  21. MOVICOL [MACROGOL,POTASSIUM CHLORIDE,SODIUM BICARBONATE,SODIUM CHL [Concomitant]
     Indication: CONSTIPATION PROPHYLAXIS
     Dosage: DAILY DOSE 2
     Route: 048
     Dates: start: 20141201
  22. DOLIPRANE [Concomitant]
     Active Substance: ACETAMINOPHEN
     Indication: ABDOMINAL PAIN UPPER
     Dosage: DAILY DOSE 1 G
     Route: 048
     Dates: start: 20150304

REACTIONS (4)
  - Back pain [Recovering/Resolving]
  - Malnutrition [Recovering/Resolving]
  - Malnutrition [None]
  - Back pain [Recovering/Resolving]

NARRATIVE: CASE EVENT DATE: 20150227
